FAERS Safety Report 24883807 (Version 1)
Quarter: 2025Q1

REPORT INFORMATION
  Report Type: Spontaneous
  Country: US (occurrence: US)
  Receive Date: 20250124
  Receipt Date: 20250124
  Transmission Date: 20250408
  Serious: No
  Sender: BLUEPRINT MEDICINES
  Company Number: US-Blueprint Medicines Corporation-2025-AER-00153

PATIENT
  Age: 77 Year
  Sex: Female

DRUGS (1)
  1. AYVAKIT [Suspect]
     Active Substance: AVAPRITINIB
     Indication: Lung carcinoma cell type unspecified stage I
     Route: 065
     Dates: start: 20241225

REACTIONS (3)
  - Rash erythematous [Unknown]
  - Mouth swelling [Unknown]
  - Off label use [Unknown]
